FAERS Safety Report 16182938 (Version 2)
Quarter: 2019Q4

REPORT INFORMATION
  Report Type: Spontaneous
  Country: JP (occurrence: JP)
  Receive Date: 20190411
  Receipt Date: 20191017
  Transmission Date: 20200122
  Serious: Yes (Other)
  Sender: FDA-Public Use
  Company Number: JP-ASTRAZENECA-2019SE40966

PATIENT
  Age: 63 Year
  Sex: Male

DRUGS (1)
  1. IMFINZI [Suspect]
     Active Substance: DURVALUMAB
     Indication: NON-SMALL CELL LUNG CANCER
     Route: 041
     Dates: start: 20190129, end: 20190215

REACTIONS (5)
  - Radiation pneumonitis [Recovered/Resolved]
  - Thirst [Not Recovered/Not Resolved]
  - Dry mouth [Unknown]
  - Rheumatic disorder [Recovering/Resolving]
  - Sputum purulent [Not Recovered/Not Resolved]

NARRATIVE: CASE EVENT DATE: 201902
